FAERS Safety Report 14406397 (Version 1)
Quarter: 2018Q1

REPORT INFORMATION
  Report Type: Spontaneous
  Country: US (occurrence: US)
  Receive Date: 20180118
  Receipt Date: 20180118
  Transmission Date: 20180509
  Serious: Yes (Disabling)
  Sender: FDA-Public Use
  Company Number: None

PATIENT
  Age: 75 Year
  Sex: Female
  Weight: 56.7 kg

DRUGS (6)
  1. DORZOLAMIDE [Concomitant]
     Active Substance: DORZOLAMIDE
  2. OFLOXACIN. [Concomitant]
     Active Substance: OFLOXACIN
  3. PREDNISOLONE. [Concomitant]
     Active Substance: PREDNISOLONE
  4. VITAMIN C [Concomitant]
     Active Substance: ASCORBIC ACID
  5. TIMOLOL. [Concomitant]
     Active Substance: TIMOLOL
  6. ERYTHROMYCIN OPHTHALMIC OINTMENT USP 0.5% [Suspect]
     Active Substance: ERYTHROMYCIN
     Indication: CORNEAL ABRASION
     Dosage: 1/8 OZ (13.5G) 4XA DAY, A LEM RIBBON INTO LOWER  CONJUNATIVALSAC OF EYE
     Dates: start: 20170308, end: 20170308

REACTIONS (2)
  - Eye swelling [None]
  - Eye abscess [None]

NARRATIVE: CASE EVENT DATE: 20170308
